FAERS Safety Report 5976695-8 (Version None)
Quarter: 2008Q4

REPORT INFORMATION
  Report Type: 
  Country: None (occurrence: None)
  Receive Date: 20081203
  Receipt Date: 20081201
  Transmission Date: 20090506
  Serious: Yes (Other)
  Sender: FDA-Public Use
  Company Number: BR-JNJFOC-20081200078

PATIENT
  Sex: Female
  Weight: 78 kg

DRUGS (3)
  1. NIZORAL [Suspect]
     Indication: INFECTION
     Dosage: 2 TABLETS ORALLY
     Route: 065
  2. NIZORAL [Suspect]
     Indication: CANDIDIASIS
     Route: 065
  3. VAGINAL CREAM [Concomitant]
     Route: 065

REACTIONS (8)
  - ABDOMINAL DISTENSION [None]
  - ABDOMINAL PAIN UPPER [None]
  - BACK PAIN [None]
  - CHEST PAIN [None]
  - DIZZINESS [None]
  - DYSPNOEA [None]
  - HEADACHE [None]
  - PAIN IN EXTREMITY [None]
